FAERS Safety Report 4959625-7 (Version None)
Quarter: 2006Q1

REPORT INFORMATION
  Report Type: 
  Country: None (occurrence: None)
  Receive Date: 20060328
  Receipt Date: 20060314
  Transmission Date: 20060701
  Serious: Yes (Other)
  Sender: FDA-Public Use
  Company Number: 223033

PATIENT
  Age: 51 Year
  Sex: Female

DRUGS (2)
  1. HERCEPTIN [Suspect]
     Indication: BREAST CANCER
     Dosage: Q3W
     Dates: start: 20060101
  2. FEMARA [Concomitant]

REACTIONS (8)
  - ABASIA [None]
  - APNOEA [None]
  - FATIGUE [None]
  - HEADACHE [None]
  - NEUROPATHY [None]
  - OEDEMA PERIPHERAL [None]
  - PHARYNGEAL OEDEMA [None]
  - THROAT TIGHTNESS [None]
